FAERS Safety Report 23100726 (Version 1)
Quarter: 2023Q4

REPORT INFORMATION
  Report Type: Spontaneous
  Country: US (occurrence: None)
  Receive Date: 20231020
  Receipt Date: 20231020
  Transmission Date: 20240109
  Serious: Yes (Hospitalization)
  Sender: FDA-Public Use
  Company Number: None

PATIENT
  Age: 76 Year
  Sex: Male
  Weight: 83 kg

DRUGS (1)
  1. WARFARIN SODIUM [Suspect]
     Active Substance: WARFARIN SODIUM
     Route: 048
     Dates: start: 20221213, end: 20230121

REACTIONS (5)
  - International normalised ratio increased [None]
  - Wound haemorrhage [None]
  - Fall [None]
  - Head injury [None]
  - Blood creatinine increased [None]

NARRATIVE: CASE EVENT DATE: 20230121
